FAERS Safety Report 10282167 (Version 1)
Quarter: 2014Q3

REPORT INFORMATION
  Report Type: Spontaneous
  Country: US (occurrence: US)
  Receive Date: 20140707
  Receipt Date: 20140707
  Transmission Date: 20150326
  Serious: No
  Sender: FDA-Public Use
  Company Number: US-PFIZER INC-2014184479

PATIENT
  Age: 79 Year
  Sex: Female
  Weight: 58.05 kg

DRUGS (2)
  1. NEXIUM 24HR [Suspect]
     Active Substance: ESOMEPRAZOLE MAGNESIUM
     Indication: GASTROOESOPHAGEAL REFLUX DISEASE
     Dosage: 44.6 MG (BY TAKING TWO CAPSULES OF 22.3MG), 1X/DAY
     Dates: start: 20140627, end: 201406
  2. LEVOTHYROXINE SODIUM. [Suspect]
     Active Substance: LEVOTHYROXINE SODIUM
     Indication: HYPOTHYROIDISM
     Dosage: UNK, 1X/DAY (BY TAKING 50 MCG AND 25 MCG EVERY ALTERNATE DAY)

REACTIONS (3)
  - Abdominal pain upper [Recovered/Resolved]
  - Intentional product misuse [Unknown]
  - Malaise [Unknown]

NARRATIVE: CASE EVENT DATE: 20140627
